FAERS Safety Report 4705960-7 (Version None)
Quarter: 2005Q2

REPORT INFORMATION
  Report Type: 
  Country: None (occurrence: None)
  Receive Date: 20050628
  Receipt Date: 20041122
  Transmission Date: 20051028
  Serious: Yes (Death)
  Sender: FDA-Public Use
  Company Number: VISP-PR-0411S-0509

PATIENT
  Age: 47 Year
  Sex: Male
  Weight: 83.9154 kg

DRUGS (4)
  1. VISIPAQUE [Suspect]
     Indication: ANGINA PECTORIS
     Dosage: 110 ML, SINGLE DOSE, I.A.
     Route: 013
     Dates: start: 20041112, end: 20041112
  2. VISIPAQUE [Suspect]
     Indication: CARDIAC STRESS TEST ABNORMAL
     Dosage: 110 ML, SINGLE DOSE, I.A.
     Route: 013
     Dates: start: 20041112, end: 20041112
  3. FENTANYL [Concomitant]
  4. VERSED [Concomitant]

REACTIONS (1)
  - ANAPHYLACTOID REACTION [None]
